FAERS Safety Report 10378749 (Version 1)
Quarter: 2014Q3

REPORT INFORMATION
  Report Type: Spontaneous
  Country: CA (occurrence: None)
  Receive Date: 20140811
  Receipt Date: 20140811
  Transmission Date: 20150326
  Serious: Yes (Other)
  Sender: FDA-Public Use
  Company Number: None

PATIENT
  Age: 21 Year
  Sex: Female
  Weight: 71.67 kg

DRUGS (1)
  1. IMOVANE [Suspect]
     Active Substance: ZOPICLONE
     Indication: INSOMNIA
     Dosage: 2 PILLS IMOVANE ONCE DAILY TAKEN BY MOUTH
     Route: 048

REACTIONS (4)
  - Memory impairment [None]
  - Abnormal behaviour [None]
  - Personality change [None]
  - Victim of sexual abuse [None]

NARRATIVE: CASE EVENT DATE: 20110301
